FAERS Safety Report 15271867 (Version 1)
Quarter: 2018Q3

REPORT INFORMATION
  Report Type: Spontaneous
  Country: DE (occurrence: DE)
  Receive Date: 20180813
  Receipt Date: 20180813
  Transmission Date: 20181010
  Serious: Yes (Disabling, Other)
  Sender: FDA-Public Use
  Company Number: DE-US WORLDMEDS, LLC-E2B_00002783

PATIENT
  Age: 84 Year
  Sex: Female

DRUGS (2)
  1. XADAGO [Suspect]
     Active Substance: SAFINAMIDE MESYLATE
     Indication: PARKINSON^S DISEASE
     Route: 048
  2. STALEVO [Concomitant]
     Active Substance: CARBIDOPA\ENTACAPONE\LEVODOPA
     Indication: PARKINSON^S DISEASE
     Route: 048

REACTIONS (3)
  - Blindness unilateral [Unknown]
  - Visual impairment [Unknown]
  - Disease progression [Unknown]
